FAERS Safety Report 5442035-6 (Version None)
Quarter: 2007Q3

REPORT INFORMATION
  Report Type: 
  Country: None (occurrence: None)
  Receive Date: 20070904
  Receipt Date: 20070821
  Transmission Date: 20080115
  Serious: Yes (Hospitalization)
  Sender: FDA-Public Use
  Company Number: US-ROCHE-512509

PATIENT
  Age: 59 Year
  Sex: Female
  Weight: 115.2 kg

DRUGS (11)
  1. CAPECITABINE [Suspect]
     Dosage: FREQUENCY REPORTED AS D1-14/Q3W.
     Route: 048
     Dates: start: 20070412
  2. BLINDED BEVACIZUMAB [Suspect]
     Dosage: FORM: POWDER AND SOLVENT FOR SOLUTION FOR INFUSION.
     Route: 042
     Dates: start: 20070412
  3. POTASSIUM CHLORIDE [Concomitant]
  4. LUNESTA [Concomitant]
  5. LIPITOR [Concomitant]
  6. AMLODIPINE [Concomitant]
  7. LEVOTHYROX [Concomitant]
  8. HYDROCHLOROTHIAZIDE [Concomitant]
     Dates: end: 20070725
  9. DEXTROL [Concomitant]
  10. HYDROCODONE BITARTRATE [Concomitant]
  11. OXYCODONE HCL [Concomitant]

REACTIONS (1)
  - MUSCLE TWITCHING [None]
